FAERS Safety Report 25611201 (Version 1)
Quarter: 2025Q3

REPORT INFORMATION
  Report Type: Spontaneous
  Country: US (occurrence: None)
  Receive Date: 20250725
  Receipt Date: 20250725
  Transmission Date: 20251020
  Serious: Yes (Hospitalization)
  Sender: FDA-CTU
  Company Number: None

PATIENT
  Age: 76 Year
  Sex: Female

DRUGS (1)
  1. LENALIDOMIDE [Suspect]
     Active Substance: LENALIDOMIDE
     Dosage: FREQUENCY : DAILY;?

REACTIONS (6)
  - Fatigue [None]
  - Diarrhoea [None]
  - Abdominal discomfort [None]
  - Brain fog [None]
  - Pulmonary embolism [None]
  - Therapy interrupted [None]
